FAERS Safety Report 8767563 (Version 1)
Quarter: 2012Q4

REPORT INFORMATION
  Report Type: 
  Country: DK (occurrence: AU)
  Receive Date: 20120904
  Receipt Date: 20120904
  Transmission Date: 20130627
  Serious: Yes (Hospitalization)
  Sender: FDA-Public Use
  Company Number: AU-FRI-1000038297

PATIENT
  Age: 53 Year
  Sex: Female

DRUGS (7)
  1. CITALOPRAM [Suspect]
     Indication: DEPRESSION
     Dosage: 40 mg
     Dates: end: 20120719
  2. LITHIUM CARBONATE [Suspect]
     Indication: DEPRESSION
     Dosage: 750 mg
     Dates: start: 20120712, end: 20120719
  3. ASPIRIN [Concomitant]
  4. ATORVASTATIN [Concomitant]
  5. CALCIUM NOS [Concomitant]
  6. ESOMEPRAZOLE MAGNESIUM TRIHYDRATE [Concomitant]
  7. SYMBICORT TURBOHALER 200/6 [Concomitant]

REACTIONS (9)
  - Serotonin syndrome [Recovered/Resolved]
  - Toxicity to various agents [Recovered/Resolved]
  - Vomiting [Recovered/Resolved]
  - Diarrhoea [Recovered/Resolved]
  - Pyrexia [Recovered/Resolved]
  - Ataxia [Recovered/Resolved]
  - Tremor [Recovered/Resolved]
  - Nausea [Recovered/Resolved]
  - Drug interaction [Recovered/Resolved]
